FAERS Safety Report 4827110-9 (Version None)
Quarter: 2005Q4

REPORT INFORMATION
  Report Type: 
  Country: None (occurrence: None)
  Receive Date: 20051114
  Receipt Date: 20051108
  Transmission Date: 20060501
  Serious: Yes (Life-Threatening, Hospitalization)
  Sender: FDA-Public Use
  Company Number: 2005JP002139

PATIENT
  Age: 70 Year
  Sex: Male
  Weight: 55 kg

DRUGS (5)
  1. CEFAZOLIN [Suspect]
     Indication: INFECTION PROPHYLAXIS
     Dosage: 1G PER DAY
     Route: 042
     Dates: start: 20051007, end: 20051007
  2. THIAMYLAL SODIUM [Suspect]
     Route: 042
     Dates: start: 20051007, end: 20051007
  3. FENTANEST [Suspect]
     Route: 042
     Dates: start: 20051007, end: 20051007
  4. VECURONIUM BROMIDE [Suspect]
     Route: 042
     Dates: start: 20051007, end: 20051007
  5. ISODINE [Suspect]
     Indication: DRUG USE FOR UNKNOWN INDICATION
     Route: 061
     Dates: start: 20051007, end: 20051007

REACTIONS (5)
  - ANAPHYLACTIC SHOCK [None]
  - BLOOD PRESSURE IMMEASURABLE [None]
  - HOT FLUSH [None]
  - PAIN [None]
  - TACHYCARDIA [None]
